FAERS Safety Report 21005354 (Version 1)
Quarter: 2022Q2

REPORT INFORMATION
  Report Type: Spontaneous
  Country: GB (occurrence: GB)
  Receive Date: 20220624
  Receipt Date: 20220624
  Transmission Date: 20220721
  Serious: Yes (Hospitalization)
  Sender: FDA-Public Use
  Company Number: None

PATIENT
  Age: 59 Year
  Sex: Female

DRUGS (1)
  1. ZOLEDRONIC ACID [Suspect]
     Active Substance: ZOLEDRONIC ACID
     Indication: Product used for unknown indication
     Dosage: 4MG STAT
     Dates: start: 20220608

REACTIONS (4)
  - Hypocalcaemia [Recovering/Resolving]
  - Hypokalaemia [Recovering/Resolving]
  - Hypophosphatasia [Recovering/Resolving]
  - Hypomagnesaemia [Recovering/Resolving]
